FAERS Safety Report 21569646 (Version 1)
Quarter: 2022Q4

REPORT INFORMATION
  Report Type: Report from Study
  Country: US (occurrence: US)
  Receive Date: 20221109
  Receipt Date: 20221109
  Transmission Date: 20230113
  Serious: Yes (Other)
  Sender: FDA-Public Use
  Company Number: US-BRISTOL-MYERS SQUIBB COMPANY-2022-131441

PATIENT
  Age: 69 Year
  Sex: Male
  Weight: 86.18 kg

DRUGS (18)
  1. REVLIMID [Suspect]
     Active Substance: LENALIDOMIDE
     Indication: Plasma cell myeloma
     Dosage: TAKE 1 CAPSULE DAILY FOR 21 DAYS, THEN 7 DAYS OFF
     Route: 065
     Dates: start: 20220204
  2. PLAVIX [Concomitant]
     Active Substance: CLOPIDOGREL BISULFATE
  3. TRULICITY [Concomitant]
     Active Substance: DULAGLUTIDE
     Dosage: 0.75MG/0.5 PEN INJCTR
  4. ENTRESTO [Concomitant]
     Active Substance: SACUBITRIL\VALSARTAN
     Dosage: 24 MG-26MG TABLET
  5. CARVEDILOL [Concomitant]
     Active Substance: CARVEDILOL
  6. ASPIRIN [Concomitant]
     Active Substance: ASPIRIN
     Dosage: 81 MG TAB CHEW
  7. DEXAMETHASONE [Concomitant]
     Active Substance: DEXAMETHASONE
  8. DEXAMETHASONE [Concomitant]
     Active Substance: DEXAMETHASONE
  9. ACYCLOVIR [Concomitant]
     Active Substance: ACYCLOVIR
  10. XARELTO [Concomitant]
     Active Substance: RIVAROXABAN
  11. XARELTO [Concomitant]
     Active Substance: RIVAROXABAN
  12. DOXYCYCLINE HYCLATE [Concomitant]
     Active Substance: DOXYCYCLINE HYCLATE
  13. COLLAGENASE SANTYL [Concomitant]
     Active Substance: COLLAGENASE CLOSTRIDIUM HISTOLYTICUM
     Dosage: 250 UNIT/G OINT.(GM)
  14. CELEBREX [Concomitant]
     Active Substance: CELECOXIB
  15. MIDODRINE HYDROCHLORIDE [Concomitant]
     Active Substance: MIDODRINE HYDROCHLORIDE
  16. VANCOMYCIN HYDROCHLORIDE [Concomitant]
     Active Substance: VANCOMYCIN HYDROCHLORIDE
  17. HUMALOG [Concomitant]
     Active Substance: INSULIN LISPRO
     Dosage: 100/ML VIAL
  18. ATORVASTATIN CALCIUM [Concomitant]
     Active Substance: ATORVASTATIN CALCIUM

REACTIONS (1)
  - Loss of consciousness [Unknown]
